FAERS Safety Report 11657748 (Version 2)
Quarter: 2015Q4

REPORT INFORMATION
  Report Type: Spontaneous
  Country: US (occurrence: US)
  Receive Date: 20151023
  Receipt Date: 20151027
  Transmission Date: 20160304
  Serious: No
  Sender: FDA-Public Use
  Company Number: US-ABBVIE-14P-163-1318119-00

PATIENT
  Sex: Female

DRUGS (1)
  1. LUPRON DEPOT [Suspect]
     Active Substance: LEUPROLIDE ACETATE
     Indication: ENDOMETRIOSIS
     Route: 030

REACTIONS (6)
  - Dysmenorrhoea [Not Recovered/Not Resolved]
  - Hot flush [Recovered/Resolved]
  - Menorrhagia [Not Recovered/Not Resolved]
  - Night sweats [Recovered/Resolved]
  - Weight increased [Not Recovered/Not Resolved]
  - Endometriosis [Not Recovered/Not Resolved]

NARRATIVE: CASE EVENT DATE: 2013
